FAERS Safety Report 9989181 (Version 3)
Quarter: 2014Q2

REPORT INFORMATION
  Report Type: Spontaneous
  Country: JP (occurrence: JP)
  Receive Date: 20140310
  Receipt Date: 20140421
  Transmission Date: 20141212
  Serious: Yes (Hospitalization)
  Sender: FDA-Public Use
  Company Number: JP-UCBSA-114312

PATIENT
  Age: 83 Year
  Sex: Female

DRUGS (8)
  1. E KEPPRA [Suspect]
     Indication: EPILEPSY
     Dosage: 500MG DOSAGE STRENGTH
     Route: 048
     Dates: start: 20131218, end: 20131224
  2. E KEPPRA [Suspect]
     Indication: STATUS EPILEPTICUS
     Dosage: 500MG DOSAGE STRENGTH
     Route: 048
     Dates: start: 20131218, end: 20131224
  3. E KEPPRA [Suspect]
     Indication: EPILEPSY
     Route: 048
     Dates: start: 20131225, end: 20140221
  4. E KEPPRA [Suspect]
     Indication: STATUS EPILEPTICUS
     Route: 048
     Dates: start: 20131225, end: 20140221
  5. OLMETEC [Concomitant]
     Route: 048
     Dates: end: 20131225
  6. AMLODIN OD [Concomitant]
     Route: 048
     Dates: end: 20131225
  7. ARICEPT D [Concomitant]
     Route: 048
     Dates: end: 20131225
  8. ALEVIATIN [Concomitant]
     Route: 048
     Dates: end: 20131226

REACTIONS (1)
  - Obstructive airways disorder [Recovered/Resolved with Sequelae]
